FAERS Safety Report 7564764-0 (Version None)
Quarter: 2011Q2

REPORT INFORMATION
  Report Type: 
  Country: None (occurrence: None)
  Receive Date: 20110622
  Receipt Date: 20110107
  Transmission Date: 20111010
  Serious: Yes (Other)
  Sender: FDA-Public Use
  Company Number: US-MYLANLABS-2010S1020167

PATIENT
  Age: 50 Year
  Sex: Female
  Weight: 75.3 kg

DRUGS (14)
  1. ALLOPURINOL [Concomitant]
  2. CLOZAPINE [Suspect]
     Route: 048
  3. PRINIVIL [Concomitant]
     Route: 048
  4. ABILIFY [Concomitant]
  5. HYDROCHLOROTHIAZIDE [Concomitant]
  6. NORVASC [Concomitant]
  7. DEPAKOTE [Concomitant]
  8. DILANTIN [Concomitant]
  9. LOPRESSOR [Concomitant]
  10. ROZEREM [Concomitant]
  11. NEURONTIN [Concomitant]
     Route: 048
  12. CENTRUM SILVER [Concomitant]
  13. CLOZAPINE [Suspect]
     Indication: SCHIZOPHRENIA, PARANOID TYPE
     Dates: end: 20101104
  14. SLOW FE [Concomitant]

REACTIONS (1)
  - GRANULOCYTOPENIA [None]
